FAERS Safety Report 26152773 (Version 1)
Quarter: 2025Q4

REPORT INFORMATION
  Report Type: Spontaneous
  Country: CN (occurrence: CN)
  Receive Date: 20251214
  Receipt Date: 20251214
  Transmission Date: 20260118
  Serious: Yes (Other)
  Sender: AMGEN
  Company Number: CN-AMGEN-CHNSP2025244804

PATIENT
  Age: 43 Year
  Sex: Male
  Weight: 80 kg

DRUGS (1)
  1. CARFILZOMIB [Suspect]
     Active Substance: CARFILZOMIB
     Indication: Plasma cell myeloma
     Dosage: 54 MILLIGRAM, QD
     Route: 040
     Dates: start: 20250711, end: 20251125

REACTIONS (1)
  - Peripheral nerve injury [Recovered/Resolved with Sequelae]

NARRATIVE: CASE EVENT DATE: 20251124
